FAERS Safety Report 9306383 (Version 1)
Quarter: 2013Q2

REPORT INFORMATION
  Report Type: Spontaneous
  Country: BR (occurrence: BR)
  Receive Date: 20130523
  Receipt Date: 20130523
  Transmission Date: 20140414
  Serious: Yes (Other)
  Sender: FDA-Public Use
  Company Number: PHHY2013BR051790

PATIENT
  Sex: 0

DRUGS (3)
  1. MYCOPHENOLATE [Suspect]
  2. EVEROLIMUS [Suspect]
  3. CORTICOSTEROID NOS [Suspect]

REACTIONS (1)
  - Arteriosclerosis [Unknown]
